FAERS Safety Report 6713110-0 (Version None)
Quarter: 2010Q2

REPORT INFORMATION
  Report Type: 
  Country: None (occurrence: None)
  Receive Date: 20100503
  Receipt Date: 20100217
  Transmission Date: 20101027
  Serious: Yes (Hospitalization)
  Sender: FDA-Public Use
  Company Number: ALL1-2010-00461

PATIENT
  Age: 8 Year
  Sex: Male

DRUGS (1)
  1. INTUNIV [Suspect]
     Indication: ATTENTION DEFICIT/HYPERACTIVITY DISORDER
     Dosage: 4 MG, 1X/DAY:QD, ORAL; 2 MG, 1X/DAY:QD, ORAL
     Route: 048
     Dates: start: 20091101

REACTIONS (2)
  - BRADYCARDIA [None]
  - HYPOTENSION [None]
